FAERS Safety Report 20964504 (Version 3)
Quarter: 2022Q3

REPORT INFORMATION
  Report Type: Report from Study
  Country: US (occurrence: US)
  Receive Date: 20220615
  Receipt Date: 20220826
  Transmission Date: 20221026
  Serious: Yes (Other)
  Sender: FDA-Public Use
  Company Number: US-JNJFOC-20220610594

PATIENT
  Age: 56 Year
  Sex: Female

DRUGS (4)
  1. SPRAVATO [Suspect]
     Active Substance: ESKETAMINE
     Indication: Depression
     Dosage: 56 MG, 2 TOTAL DOSES, INDUCTION PHASE
     Dates: start: 20220321, end: 20220324
  2. SPRAVATO [Suspect]
     Active Substance: ESKETAMINE
     Indication: Bipolar disorder
     Dosage: 84 MG, 1 TOTAL DOSES
     Dates: start: 20220329, end: 20220329
  3. SPRAVATO [Suspect]
     Active Substance: ESKETAMINE
     Dosage: 56 MG,1 TOTAL DOSES
     Dates: start: 20220405, end: 20220405
  4. CYMBALTA [Concomitant]
     Active Substance: DULOXETINE HYDROCHLORIDE
     Indication: Bipolar disorder
     Route: 065
     Dates: start: 2016

REACTIONS (4)
  - Suicidal ideation [Recovered/Resolved]
  - Depression [Recovering/Resolving]
  - Sedation [Recovered/Resolved]
  - Dissociation [Recovered/Resolved]

NARRATIVE: CASE EVENT DATE: 20220324
